FAERS Safety Report 13830577 (Version 2)
Quarter: 2018Q1

REPORT INFORMATION
  Report Type: Spontaneous
  Country: US (occurrence: US)
  Receive Date: 20170803
  Receipt Date: 20180201
  Transmission Date: 20180508
  Serious: No
  Sender: FDA-Public Use
  Company Number: US-SA-2017SA091113

PATIENT
  Age: 47 Year
  Sex: Female
  Weight: 108.8 kg

DRUGS (2)
  1. ALIROCUMAB PREFILLED PEN [Suspect]
     Active Substance: ALIROCUMAB
     Indication: TYPE V HYPERLIPIDAEMIA
     Dates: start: 20170414
  2. PRALUENT [Suspect]
     Active Substance: ALIROCUMAB
     Indication: TYPE V HYPERLIPIDAEMIA
     Route: 058
     Dates: start: 20170414

REACTIONS (7)
  - Nasopharyngitis [Unknown]
  - Productive cough [Unknown]
  - Swelling [Unknown]
  - Contusion [Unknown]
  - Pain [Unknown]
  - Myalgia [Unknown]
  - Varicose vein [Unknown]

NARRATIVE: CASE EVENT DATE: 2017
